FAERS Safety Report 9508771 (Version 1)
Quarter: 2013Q3

REPORT INFORMATION
  Report Type: Spontaneous
  Country: US (occurrence: US)
  Receive Date: 20130909
  Receipt Date: 20130909
  Transmission Date: 20140515
  Serious: Yes (Hospitalization)
  Sender: FDA-Public Use
  Company Number: US-BRISTOL-MYERS SQUIBB COMPANY-19110774

PATIENT
  Age: 31 Year
  Sex: Female
  Weight: 88.43 kg

DRUGS (1)
  1. ABILIFY [Suspect]
     Indication: DEPRESSION
     Dosage: 40 MG ABILIFY DAILY
     Dates: start: 201101

REACTIONS (5)
  - Cerebrovascular accident [Unknown]
  - Gait disturbance [Unknown]
  - Speech disorder [Unknown]
  - Memory impairment [Unknown]
  - Dystonia [Unknown]
